FAERS Safety Report 9731186 (Version 1)
Quarter: 2013Q4

REPORT INFORMATION
  Report Type: Spontaneous
  Country: JP (occurrence: JP)
  Receive Date: 20131203
  Receipt Date: 20131203
  Transmission Date: 20140711
  Serious: Yes (Hospitalization)
  Sender: FDA-Public Use
  Company Number: JP-SA-2013SA122021

PATIENT
  Age: 68 Year
  Sex: Female

DRUGS (7)
  1. ACETAZOLAMIDE [Suspect]
     Indication: GLAUCOMA
     Route: 065
  2. GLIMEPIRIDE [Suspect]
     Indication: DIABETES MELLITUS
     Route: 048
  3. LINAGLIPTIN [Suspect]
     Indication: DIABETES MELLITUS
     Route: 048
  4. MANNITOL [Suspect]
     Indication: GLAUCOMA
     Route: 065
  5. TELMISARTAN [Concomitant]
     Route: 048
  6. AZOSEMIDE [Concomitant]
     Route: 048
  7. POTASSIUM [Concomitant]
     Indication: GLAUCOMA

REACTIONS (6)
  - Renal failure acute [Recovered/Resolved]
  - Condition aggravated [Unknown]
  - Blood creatinine increased [Recovered/Resolved]
  - Hyponatraemia [Recovered/Resolved]
  - Hypoglycaemia [Recovered/Resolved]
  - Altered state of consciousness [Recovered/Resolved]
